FAERS Safety Report 18575277 (Version 4)
Quarter: 2021Q1

REPORT INFORMATION
  Report Type: Spontaneous
  Country: US (occurrence: US)
  Receive Date: 20201203
  Receipt Date: 20210105
  Transmission Date: 20210419
  Serious: No
  Sender: FDA-Public Use
  Company Number: US-PFIZER INC-2020393795

PATIENT
  Age: 54 Year
  Sex: Female

DRUGS (5)
  1. IBRANCE [Suspect]
     Active Substance: PALBOCICLIB
     Dosage: UNK
     Dates: start: 20201009, end: 202010
  2. IBRANCE [Interacting]
     Active Substance: PALBOCICLIB
     Dosage: 125 MG
     Dates: start: 20201102, end: 202011
  3. IBRANCE [Interacting]
     Active Substance: PALBOCICLIB
     Dosage: 125 MG
     Dates: start: 20201105
  4. PANTOPRAZOLE [Interacting]
     Active Substance: PANTOPRAZOLE
     Indication: GASTROOESOPHAGEAL REFLUX DISEASE
  5. IBRANCE [Interacting]
     Active Substance: PALBOCICLIB
     Dosage: 125 MG
     Dates: start: 20201012, end: 2020

REACTIONS (8)
  - Diarrhoea [Unknown]
  - Drug interaction [Unknown]
  - Neoplasm progression [Unknown]
  - Transcription medication error [Unknown]
  - Gastrooesophageal reflux disease [Recovering/Resolving]
  - Pain [Recovering/Resolving]
  - Dysphonia [Not Recovered/Not Resolved]
  - Alopecia [Unknown]

NARRATIVE: CASE EVENT DATE: 2020
